FAERS Safety Report 24717058 (Version 3)
Quarter: 2025Q1

REPORT INFORMATION
  Report Type: Spontaneous
  Country: JP (occurrence: JP)
  Receive Date: 20241210
  Receipt Date: 20250228
  Transmission Date: 20250409
  Serious: Yes (Hospitalization, Other)
  Sender: PFIZER
  Company Number: JP-ONO-2024JP024928

PATIENT
  Age: 68 Year
  Sex: Female

DRUGS (4)
  1. BRAFTOVI [Suspect]
     Active Substance: ENCORAFENIB
     Indication: Thyroid cancer
     Route: 048
     Dates: start: 20241125
  2. BRAFTOVI [Suspect]
     Active Substance: ENCORAFENIB
     Indication: Anaplastic thyroid cancer
     Route: 048
     Dates: start: 20241224
  3. MEKTOVI [Suspect]
     Active Substance: BINIMETINIB
     Indication: Thyroid cancer
     Dosage: 45 MG, 2X/DAY (Q12H)
     Route: 048
     Dates: start: 20241125
  4. MEKTOVI [Suspect]
     Active Substance: BINIMETINIB
     Indication: Anaplastic thyroid cancer
     Dosage: 30 MG, 2X/DAY (Q12H)
     Route: 048
     Dates: start: 20241224

REACTIONS (1)
  - Renal impairment [Recovering/Resolving]

NARRATIVE: CASE EVENT DATE: 20241128
